FAERS Safety Report 8217494-6 (Version None)
Quarter: 2012Q1

REPORT INFORMATION
  Report Type: 
  Country: None (occurrence: None)
  Receive Date: 20120302
  Receipt Date: 20111005
  Transmission Date: 20120608
  Serious: Yes (Hospitalization)
  Sender: FDA-Public Use
  Company Number: 2011BH029433

PATIENT
  Sex: Male

DRUGS (1)
  1. EXTRANEAL [Suspect]
     Indication: PERITONEAL DIALYSIS
     Dosage: ;UNK;IP
     Route: 033
     Dates: start: 20110901

REACTIONS (2)
  - PERITONITIS BACTERIAL [None]
  - PROCEDURAL PAIN [None]
